FAERS Safety Report 5010486-X (Version None)
Quarter: 2006Q2

REPORT INFORMATION
  Report Type: 
  Country: None (occurrence: None)
  Receive Date: 20060525
  Receipt Date: 20050531
  Transmission Date: 20061013
  Serious: No
  Sender: FDA-Public Use
  Company Number: US-GLAXOSMITHKLINE-A0560560A

PATIENT
  Age: 66 Year
  Sex: Male

DRUGS (8)
  1. BACTROBAN [Suspect]
     Indication: SKIN INFECTION
     Dosage: 2PCT TWICE PER DAY
     Route: 061
     Dates: start: 20050201
  2. ATIVAN [Concomitant]
  3. DYNACIRC [Concomitant]
  4. ASPIRIN [Concomitant]
  5. INDERAL LA [Concomitant]
  6. LIPITOR [Concomitant]
  7. PEPCID AC [Concomitant]
  8. TOPICORT [Concomitant]

REACTIONS (3)
  - ERYTHEMA [None]
  - PRURITUS [None]
  - SKIN EXFOLIATION [None]
